FAERS Safety Report 4607821-0 (Version None)
Quarter: 2005Q1

REPORT INFORMATION
  Report Type: 
  Country: None (occurrence: None)
  Receive Date: 20050314
  Receipt Date: 20050307
  Transmission Date: 20050727
  Serious: Yes (Death)
  Sender: FDA-Public Use
  Company Number: US-GLAXOSMITHKLINE-A0548547A

PATIENT
  Age: 86 Year
  Sex: Male

DRUGS (3)
  1. CITRUCEL REGULAR SUSPENSION [Suspect]
     Indication: CONSTIPATION
     Route: 048
  2. COUMADIN [Concomitant]
  3. ZOLOFT [Concomitant]

REACTIONS (1)
  - CARDIAC FAILURE CONGESTIVE [None]
